FAERS Safety Report 7517169-2 (Version None)
Quarter: 2011Q2

REPORT INFORMATION
  Report Type: 
  Country: None (occurrence: None)
  Receive Date: 20110601
  Receipt Date: 20110524
  Transmission Date: 20111010
  Serious: Yes (Other)
  Sender: FDA-Public Use
  Company Number: JP-PFIZER INC-2011052414

PATIENT
  Age: 55 Year
  Sex: Male
  Weight: 59.7 kg

DRUGS (9)
  1. GRAN [Concomitant]
     Indication: NEUTROPHIL COUNT DECREASED
     Dosage: UNK
     Route: 041
     Dates: start: 20100801, end: 20100817
  2. BUSULFAN [Suspect]
     Indication: ACUTE MYELOID LEUKAEMIA
     Dosage: UNK
     Route: 041
     Dates: start: 20100723, end: 20100725
  3. MYLOTARG [Suspect]
     Indication: ACUTE MYELOID LEUKAEMIA
     Dosage: 15MG 1 DOSE
     Route: 041
     Dates: start: 20100507, end: 20100507
  4. CICLOSPORIN [Concomitant]
     Indication: PROPHYLAXIS
     Dosage: UNK
     Route: 041
     Dates: start: 20100727, end: 20100827
  5. ACICLOVIR [Concomitant]
     Indication: PROPHYLAXIS
     Dosage: 250 MG, 3X/DAY
     Route: 041
     Dates: start: 20100721, end: 20100824
  6. FENTANYL [Concomitant]
     Indication: CANCER PAIN
     Dosage: UNK
     Route: 041
     Dates: start: 20100803, end: 20100814
  7. MEROPENEM [Concomitant]
     Indication: SEPSIS
     Dosage: 1 G, 3X/DAY
     Route: 041
     Dates: start: 20100806, end: 20100824
  8. MYLOTARG [Suspect]
     Dosage: 15MG ONE DOSE
     Dates: start: 20110531, end: 20110531
  9. ZANTAC [Concomitant]
     Indication: GASTRIC ULCER
     Dosage: 50 MG, 2X/DAY
     Route: 041
     Dates: start: 20100804

REACTIONS (1)
  - VENOOCCLUSIVE LIVER DISEASE [None]
